FAERS Safety Report 5090310-X (Version None)
Quarter: 2006Q3

REPORT INFORMATION
  Report Type: 
  Country: None (occurrence: None)
  Receive Date: 20060828
  Receipt Date: 20060712
  Transmission Date: 20061208
  Serious: Yes (Hospitalization, Other)
  Sender: FDA-Public Use
  Company Number: US-GLAXOSMITHKLINE-A0612199A

PATIENT
  Age: 39 Year
  Sex: Female

DRUGS (3)
  1. WELLBUTRIN [Suspect]
     Indication: DRUG USE FOR UNKNOWN INDICATION
     Dosage: 150MG UNKNOWN
     Route: 048
     Dates: start: 20060705, end: 20060707
  2. RISPERDAL [Concomitant]
     Dosage: 1MG PER DAY
     Route: 048
  3. DIOVAN [Concomitant]
     Dosage: 160MG PER DAY
     Route: 048

REACTIONS (1)
  - RASH GENERALISED [None]
